FAERS Safety Report 12333321 (Version 4)
Quarter: 2016Q3

REPORT INFORMATION
  Report Type: Spontaneous
  Country: US (occurrence: US)
  Receive Date: 20160504
  Receipt Date: 20160825
  Transmission Date: 20161109
  Serious: Yes (Hospitalization, Other)
  Sender: FDA-Public Use
  Company Number: US-JNJFOC-20160424310

PATIENT
  Age: 54 Year
  Sex: Male

DRUGS (18)
  1. FLOLAN [Suspect]
     Active Substance: EPOPROSTENOL SODIUM
     Indication: PULMONARY ARTERIAL HYPERTENSION
     Dosage: REGIMEN# 41.5 NG/KG/MIN CONTINUOUSLY
     Route: 042
  2. FLOLAN [Suspect]
     Active Substance: EPOPROSTENOL SODIUM
     Indication: PULMONARY ARTERIAL HYPERTENSION
     Dosage: REGIMEN 2: 75,000 NG/ML PUMP RATE 77 ML/DAY, VIAL STRENGTH 1.5 MG), CONTINUOUS, INTRAVENOUS INFUSION
     Route: 042
  3. FLOLAN [Suspect]
     Active Substance: EPOPROSTENOL SODIUM
     Indication: PULMONARY ARTERIAL HYPERTENSION
     Dosage: REGIMEN#6 50 NG/KG/MIN CONTINUOUS
     Route: 042
  4. FLOLAN [Suspect]
     Active Substance: EPOPROSTENOL SODIUM
     Indication: PULMONARY ARTERIAL HYPERTENSION
     Dosage: 50 NG/KG/MIN (CONC 75,000 NG/ML, PUMP RATE 93 ML/DAY, VIAL STRENGTH 1.5), CONTINUOUS IV INFUSION
     Route: 042
  5. XARELTO [Suspect]
     Active Substance: RIVAROXABAN
     Indication: PRODUCT USED FOR UNKNOWN INDICATION
     Route: 048
  6. FLOLAN [Suspect]
     Active Substance: EPOPROSTENOL SODIUM
     Indication: PULMONARY ARTERIAL HYPERTENSION
     Dosage: REGIMEN# 41.5 NG/KG/MIN CONTINUOUSLY
     Route: 042
  7. ADCIRCA [Concomitant]
     Active Substance: TADALAFIL
     Route: 065
  8. FLOLAN [Suspect]
     Active Substance: EPOPROSTENOL SODIUM
     Indication: PULMONARY ARTERIAL HYPERTENSION
     Dosage: REGIMEN#4 22 ML/KG/MIN CONTINUOUS INTRAVENOUS INFUSION
     Route: 042
  9. BOSENTAN. [Concomitant]
     Active Substance: BOSENTAN
     Route: 065
  10. FLOLAN [Suspect]
     Active Substance: EPOPROSTENOL SODIUM
     Indication: PULMONARY ARTERIAL HYPERTENSION
     Dosage: 50 NG/KG/MIN (CONC 75,000 NG/ML, PUMP RATE 93 ML/DAY, VIAL STRENGTH 1.5), CO
     Route: 042
  11. FLOLAN [Suspect]
     Active Substance: EPOPROSTENOL SODIUM
     Indication: PULMONARY ARTERIAL HYPERTENSION
     Dosage: REGIMEN 2: 75,000 NG/ML PUMP RATE 77 ML/DAY, VIAL STRENGTH 1.5 MG), CONTINUOUS, INTRAVENOUS INFUSION
     Route: 042
  12. COUMADIN [Suspect]
     Active Substance: WARFARIN SODIUM
     Indication: PRODUCT USED FOR UNKNOWN INDICATION
     Route: 065
  13. FLOLAN [Suspect]
     Active Substance: EPOPROSTENOL SODIUM
     Indication: PULMONARY ARTERIAL HYPERTENSION
     Dosage: REGIMEN#6 50 NG/KG/MIN CONTINUOUS
     Route: 042
  14. FLOLAN [Suspect]
     Active Substance: EPOPROSTENOL SODIUM
     Indication: PULMONARY ARTERIAL HYPERTENSION
     Dosage: 50 NG/KG/MIN (CONC 75,000 NG/ML, PUMP RATE 93 ML/DAY, VIAL STRENGTH 1.5), CONTINUOUS IV INFUSION
     Route: 042
  15. FLOLAN [Suspect]
     Active Substance: EPOPROSTENOL SODIUM
     Indication: PULMONARY ARTERIAL HYPERTENSION
     Dosage: 50 NG/KG/MIN
     Route: 042
     Dates: start: 20070321
  16. FLOLAN [Suspect]
     Active Substance: EPOPROSTENOL SODIUM
     Indication: PULMONARY ARTERIAL HYPERTENSION
     Dosage: 50 NG/KG/MIN (CONC 75,000 NG/ML, PUMP RATE 93 ML/DAY, VIAL STRENGTH 1.5), CO
     Route: 042
  17. FLOLAN [Suspect]
     Active Substance: EPOPROSTENOL SODIUM
     Indication: PULMONARY ARTERIAL HYPERTENSION
     Dosage: 50 NG/KG/MIN
     Route: 042
     Dates: start: 20070321
  18. FLOLAN [Suspect]
     Active Substance: EPOPROSTENOL SODIUM
     Indication: PULMONARY ARTERIAL HYPERTENSION
     Dosage: REGIMEN#4 22 ML/KG/MIN CONTINUOUS INTRAVENOUS INFUSION
     Route: 042

REACTIONS (11)
  - Pain in extremity [Recovering/Resolving]
  - Pancreatitis acute [Unknown]
  - Gastrointestinal haemorrhage [Recovering/Resolving]
  - Therapeutic procedure [Recovering/Resolving]
  - Portal hypertensive gastropathy [Recovering/Resolving]
  - Catheter management [Recovering/Resolving]
  - Syncope [Recovering/Resolving]
  - Headache [Recovering/Resolving]
  - Adverse drug reaction [Recovering/Resolving]
  - Pain in jaw [Recovering/Resolving]
  - Device related infection [Unknown]

NARRATIVE: CASE EVENT DATE: 201505
